FAERS Safety Report 14077774 (Version 2)
Quarter: 2018Q1

REPORT INFORMATION
  Report Type: Spontaneous
  Country: FR (occurrence: FR)
  Receive Date: 20171012
  Receipt Date: 20180203
  Transmission Date: 20180508
  Serious: Yes (Disabling, Other)
  Sender: FDA-Public Use
  Company Number: FR-ROCHE-1986427

PATIENT
  Age: 37 Year
  Sex: Male
  Weight: 75 kg

DRUGS (2)
  1. COTELLIC [Suspect]
     Active Substance: COBIMETINIB
     Indication: MALIGNANT MELANOMA
     Route: 048
     Dates: start: 20160201, end: 20170814
  2. ZELBORAF [Suspect]
     Active Substance: VEMURAFENIB
     Indication: MALIGNANT MELANOMA
     Route: 048
     Dates: start: 20160119

REACTIONS (5)
  - Solar dermatitis [Recovered/Resolved]
  - Facial paralysis [Not Recovered/Not Resolved]
  - Neuralgia [Not Recovered/Not Resolved]
  - Paraesthesia [Recovered/Resolved]
  - Myalgia [Recovered/Resolved]

NARRATIVE: CASE EVENT DATE: 201707
